FAERS Safety Report 5489240-0 (Version None)
Quarter: 2007Q4

REPORT INFORMATION
  Report Type: 
  Country: None (occurrence: None)
  Receive Date: 20071016
  Receipt Date: 20071010
  Transmission Date: 20080405
  Serious: Yes (Death, Hospitalization)
  Sender: FDA-Public Use
  Company Number: 163-21880-07060714

PATIENT
  Age: 90 Year
  Sex: Male

DRUGS (5)
  1. REVLIMID [Suspect]
     Indication: MYELODYSPLASTIC SYNDROME
     Dosage: 5 MG, 1 IN  1 D, ORAL
     Route: 048
     Dates: start: 20070420, end: 20070608
  2. SYNTHROID [Suspect]
     Indication: DRUG USE FOR UNKNOWN INDICATION
     Dosage: QD
     Dates: end: 20070713
  3. ARANESP [Concomitant]
  4. COREG [Concomitant]
  5. LASIX [Concomitant]

REACTIONS (4)
  - DISEASE PROGRESSION [None]
  - HAEMOGLOBIN DECREASED [None]
  - MYELODYSPLASTIC SYNDROME [None]
  - PLATELET COUNT DECREASED [None]
